FAERS Safety Report 9298524 (Version 2)
Quarter: 2013Q2

REPORT INFORMATION
  Report Type: Spontaneous
  Country: BR (occurrence: BR)
  Receive Date: 20130520
  Receipt Date: 20130530
  Transmission Date: 20140414
  Serious: Yes (Other)
  Sender: FDA-Public Use
  Company Number: PHHY2013BR049089

PATIENT
  Age: 17 Year
  Sex: Male

DRUGS (3)
  1. RITALINA [Suspect]
     Dosage: 4 DF, DAILY
     Route: 048
  2. RITALIN LA [Suspect]
     Dosage: UNK UKN (20 MG), UNK
  3. RITALIN LA [Suspect]
     Dosage: UNK UKN (10 MG), UNK

REACTIONS (3)
  - Depression [Recovered/Resolved]
  - Drug intolerance [Unknown]
  - Abdominal discomfort [Recovered/Resolved]
